FAERS Safety Report 21237417 (Version 3)
Quarter: 2022Q3

REPORT INFORMATION
  Report Type: Spontaneous
  Country: US (occurrence: US)
  Receive Date: 20220822
  Receipt Date: 20220923
  Transmission Date: 20221027
  Serious: No
  Sender: FDA-Public Use
  Company Number: US-BRISTOL-MYERS SQUIBB COMPANY-2022-092898

PATIENT
  Age: 78 Year
  Sex: Female

DRUGS (3)
  1. POMALYST [Suspect]
     Active Substance: POMALIDOMIDE
     Indication: Anxiety disorder
     Dosage: TAKE 1 CAPSULE BY MOUTH WHOLE WITH WATER, W/ OR W/O FOOD AT THE SAME TIME EVERY DAY ON ?DAYS 1-21 OF
     Route: 048
     Dates: start: 20200829
  2. POMALYST [Suspect]
     Active Substance: POMALIDOMIDE
     Dosage: TAKE 1 CAPSULE BY MOUTH WHOLE WITH WATER, W/ OR W/O FOOD AT THE SAME TIME EVERY DAY ON DAYS 1-21 OF
     Route: 048
     Dates: start: 20220725
  3. POMALYST [Suspect]
     Active Substance: POMALIDOMIDE
     Route: 048
     Dates: start: 20220722

REACTIONS (2)
  - Product dose omission issue [Unknown]
  - Intentional product use issue [Unknown]
